FAERS Safety Report 14574227 (Version 4)
Quarter: 2019Q4

REPORT INFORMATION
  Report Type: Report from Study
  Country: US (occurrence: US)
  Receive Date: 20180226
  Receipt Date: 20191209
  Transmission Date: 20200122
  Serious: Yes (Other)
  Sender: FDA-Public Use
  Company Number: US-ACTELION-A-US2017-149062

PATIENT
  Age: 56 Year
  Sex: Male

DRUGS (4)
  1. OPSUMIT [Suspect]
     Active Substance: MACITENTAN
     Indication: PULMONARY ARTERIAL HYPERTENSION
     Dosage: 10 MG, QD
     Route: 048
     Dates: start: 20131212
  2. PROBIOTIC [Concomitant]
     Active Substance: PROBIOTICS NOS
  3. METOPROLOL. [Concomitant]
     Active Substance: METOPROLOL
     Route: 065
  4. OPSUMIT [Suspect]
     Active Substance: MACITENTAN
     Dosage: UNK
     Route: 048
     Dates: start: 20140121

REACTIONS (11)
  - Weight decreased [Unknown]
  - Fluid retention [Unknown]
  - Terminal state [Unknown]
  - Bronchitis [Unknown]
  - Dyspnoea [Unknown]
  - Arthritis [Not Recovered/Not Resolved]
  - Blood pressure decreased [Unknown]
  - Abscess [Recovered/Resolved]
  - Vitamin D deficiency [Unknown]
  - Gastrectomy [Unknown]
  - Emphysema [Unknown]

NARRATIVE: CASE EVENT DATE: 20170110
